FAERS Safety Report 8234050-4 (Version None)
Quarter: 2012Q1

REPORT INFORMATION
  Report Type: 
  Country: None (occurrence: None)
  Receive Date: 20120326
  Receipt Date: 20120326
  Transmission Date: 20120608
  Serious: Yes (Life-Threatening, Hospitalization)
  Sender: FDA-Public Use
  Company Number: None

PATIENT
  Sex: Male
  Weight: 68.946 kg

DRUGS (2)
  1. PIPERACILLIN AND TAZOBACTAM [Suspect]
     Indication: CORONARY ARTERY BYPASS
     Dosage: 3.375 GM
     Route: 042
     Dates: start: 20120314, end: 20120315
  2. CEFTRIAXONE [Concomitant]
     Indication: PNEUMONIA
     Dosage: 1 GM
     Route: 042
     Dates: start: 20120308, end: 20120313

REACTIONS (7)
  - BLISTER [None]
  - TEMPERATURE INTOLERANCE [None]
  - SKIN LESION [None]
  - STOMATITIS [None]
  - APHAGIA [None]
  - ORAL PAIN [None]
  - TENDERNESS [None]
